FAERS Safety Report 20021954 (Version 4)
Quarter: 2021Q4

REPORT INFORMATION
  Report Type: Report from Study
  Country: GB (occurrence: GB)
  Receive Date: 20211102
  Receipt Date: 20211214
  Transmission Date: 20220303
  Serious: Yes (Hospitalization, Other)
  Sender: FDA-Public Use
  Company Number: GB-CELLTRION INC.-2021GB014609

PATIENT

DRUGS (74)
  1. TRASTUZUMAB [Suspect]
     Active Substance: TRASTUZUMAB
     Indication: Breast cancer metastatic
     Dosage: 600 MG, QWK (PHARMACEUTICAL DOSE FORM: 293)
     Route: 042
     Dates: start: 20150817, end: 20150817
  2. TRASTUZUMAB [Suspect]
     Active Substance: TRASTUZUMAB
     Dosage: 450 MILLIGRAM, 3 TIMES/WK (PHARMACEUTICAL DOSE FORM: 293)
     Route: 042
     Dates: start: 20150908, end: 20160831
  3. TRASTUZUMAB [Suspect]
     Active Substance: TRASTUZUMAB
     Dosage: 600 MILLIGRAM (PHARMACEUTICAL DOSE FORM: 293)
     Route: 042
     Dates: start: 20160921, end: 20170530
  4. TRASTUZUMAB [Suspect]
     Active Substance: TRASTUZUMAB
     Dosage: 600 MILLIGRAM, 3 TIMES/WK
     Route: 042
     Dates: start: 20170719
  5. PERTUZUMAB [Suspect]
     Active Substance: PERTUZUMAB
     Indication: Breast cancer metastatic
     Dosage: UNK (PHARMACEUTICAL DOSE FORM: 230)
     Route: 042
     Dates: start: 20150908
  6. CAPECITABINE [Suspect]
     Active Substance: CAPECITABINE
     Indication: Breast cancer metastatic
     Dosage: 1800 MILLIGRAM, BID (PHARMACEUTICAL DOSE FORM: 245)
     Route: 048
     Dates: start: 20170719, end: 20170830
  7. CAPECITABINE [Suspect]
     Active Substance: CAPECITABINE
     Dosage: 1450 MG, BID (PHARMACEUTICAL DOSE FORM: 245)
     Route: 048
     Dates: start: 20170830, end: 20171101
  8. METHOTREXATE [Suspect]
     Active Substance: METHOTREXATE
     Indication: Breast cancer metastatic
     Dosage: 10 MILLIGRAM, 2 TIMES/WK
     Route: 042
  9. ERIBULIN MESYLATE [Suspect]
     Active Substance: ERIBULIN MESYLATE
     Indication: Breast cancer metastatic
     Dosage: UNK
     Route: 042
     Dates: start: 20190429, end: 20190911
  10. EPIRUBICIN HYDROCHLORIDE [Suspect]
     Active Substance: EPIRUBICIN HYDROCHLORIDE
     Indication: Breast cancer metastatic
     Dosage: 170 MG, 1/WEEK
     Route: 042
     Dates: start: 20150724, end: 20150724
  11. CYCLOPHOSPHAMIDE [Suspect]
     Active Substance: CYCLOPHOSPHAMIDE
     Indication: Breast cancer metastatic
     Dosage: 1000 MILLIGRAM, QWK
     Route: 042
     Dates: start: 20191112
  12. DOCETAXEL [Suspect]
     Active Substance: DOCETAXEL
     Indication: Breast cancer metastatic
     Dosage: 140 MG, QWK
     Route: 042
     Dates: start: 20150818, end: 20151201
  13. ADO-TRASTUZUMAB EMTANSINE [Suspect]
     Active Substance: ADO-TRASTUZUMAB EMTANSINE
     Indication: Breast cancer metastatic
     Dosage: 600 MG, QWK (PHARMACEUTICAL DOSE FORM: 293)
     Route: 065
     Dates: start: 20150817, end: 20150817
  14. ADO-TRASTUZUMAB EMTANSINE [Suspect]
     Active Substance: ADO-TRASTUZUMAB EMTANSINE
     Dosage: 260 MG, QWK (PHARMACEUTICAL DOSE FORM: 293)
     Route: 042
     Dates: start: 20160921, end: 20170531
  15. ADO-TRASTUZUMAB EMTANSINE [Suspect]
     Active Substance: ADO-TRASTUZUMAB EMTANSINE
     Dosage: 450 MILLIGRAM, QWK (PHARMACEUTICAL DOSE FORM: 293)
     Route: 065
     Dates: start: 20150908, end: 20160831
  16. ADO-TRASTUZUMAB EMTANSINE [Suspect]
     Active Substance: ADO-TRASTUZUMAB EMTANSINE
     Dosage: 600 MG, QWK (PHARMACEUTICAL DOSE FORM: 293)
     Route: 065
     Dates: start: 20170719, end: 20190911
  17. DALTEPARIN [Concomitant]
     Active Substance: DALTEPARIN
     Dosage: 5000 INTERNATIONAL UNIT
     Route: 058
     Dates: start: 20180201, end: 20180201
  18. DIAZEPAM [Concomitant]
     Active Substance: DIAZEPAM
     Indication: Sedation
     Dosage: 2 MG
     Route: 048
     Dates: start: 20150708
  19. CODEINE PHOSPHATE [Concomitant]
     Active Substance: CODEINE PHOSPHATE
     Dosage: 30 MG
     Route: 048
     Dates: start: 20180208, end: 20180322
  20. DOCUSATE [Concomitant]
     Active Substance: DOCUSATE
     Indication: Constipation
     Dosage: 100 MG
     Route: 048
     Dates: start: 20191009
  21. POLYETHYLENE GLYCOL 3350\POTASSIUM CHLORIDE\SODIUM BICARBONATE\SODIUM [Concomitant]
     Active Substance: POLYETHYLENE GLYCOL 3350\POTASSIUM CHLORIDE\SODIUM BICARBONATE\SODIUM CHLORIDE
     Indication: Constipation
     Dosage: UNK
  22. POLYETHYLENE GLYCOL 3350\POTASSIUM CHLORIDE\SODIUM BICARBONATE\SODIUM [Concomitant]
     Active Substance: POLYETHYLENE GLYCOL 3350\POTASSIUM CHLORIDE\SODIUM BICARBONATE\SODIUM CHLORIDE
     Dosage: 7.5 MG
     Route: 048
     Dates: start: 20171122
  23. DICLOFENAC [Concomitant]
     Active Substance: DICLOFENAC
     Dosage: UNK
     Route: 061
     Dates: start: 20181107
  24. FILGRASTIM [Concomitant]
     Active Substance: FILGRASTIM
     Indication: Neutropenia
     Dosage: 480 MICROGRAM (PHARMACEUTICAL DOSE FORM: 231)
     Route: 058
     Dates: start: 20150819, end: 20150823
  25. FILGRASTIM [Concomitant]
     Active Substance: FILGRASTIM
     Dosage: 480 MICROGRAM (PHARMACEUTICAL DOSE FORM: 231)
     Route: 058
     Dates: start: 20150909, end: 20150913
  26. ORAMORPH SR SUSTAINED RELEASE [Concomitant]
     Active Substance: MORPHINE SULFATE
     Indication: Pain
     Dosage: 7.5 MILLIGRAM
     Route: 048
     Dates: start: 20190911
  27. ORAMORPH SR SUSTAINED RELEASE [Concomitant]
     Active Substance: MORPHINE SULFATE
     Dosage: 10 MILLIGRAM
     Route: 048
     Dates: start: 20150708
  28. LANSOPRAZOLE [Concomitant]
     Active Substance: LANSOPRAZOLE
     Indication: Epigastric discomfort
     Dosage: 30 MILLIGRAM, BID
     Route: 048
     Dates: start: 20180306, end: 20180322
  29. LANSOPRAZOLE [Concomitant]
     Active Substance: LANSOPRAZOLE
     Dosage: 30 MILLIGRAM, QD
     Route: 048
     Dates: start: 20190911
  30. GABAPENTIN [Concomitant]
     Active Substance: GABAPENTIN
     Dosage: 900 MILLIGRAM, TID
     Route: 048
     Dates: start: 20191023
  31. GABAPENTIN [Concomitant]
     Active Substance: GABAPENTIN
     Dosage: 600 MILLIGRAM, TID
     Route: 048
     Dates: start: 20191019, end: 20191023
  32. GABAPENTIN [Concomitant]
     Active Substance: GABAPENTIN
     Dosage: 300 MILLIGRAM, TID
     Route: 048
     Dates: start: 20191011, end: 20191018
  33. GABAPENTIN [Concomitant]
     Active Substance: GABAPENTIN
     Dosage: 200 MILLIGRAM, TID
     Route: 048
     Dates: start: 20190911, end: 20191009
  34. GABAPENTIN [Concomitant]
     Active Substance: GABAPENTIN
     Dosage: 300 MILLIGRAM, TID
     Route: 048
     Dates: start: 20191009, end: 20191011
  35. TINZAPARIN [Concomitant]
     Active Substance: TINZAPARIN
     Indication: Deep vein thrombosis
     Dosage: 25000 INTERNATIONAL UNIT, QD
     Route: 058
     Dates: start: 20190911, end: 20190917
  36. MORPHINE [Concomitant]
     Active Substance: MORPHINE
     Dosage: 10 MILLIGRAM (OCCLUSIVE DRESSING TECHNIQUE)
     Dates: start: 20191021
  37. IBUPROFEN [Concomitant]
     Active Substance: IBUPROFEN
     Indication: Pain
     Dosage: 400 MILLIGRAM, TID
     Route: 048
     Dates: start: 20150708, end: 20180306
  38. LORAZEPAM [Concomitant]
     Active Substance: LORAZEPAM
     Dosage: 0.5 MILLIGRAM
     Route: 048
     Dates: start: 20180405
  39. LETROZOLE [Concomitant]
     Active Substance: LETROZOLE
     Dosage: 2.5 MILLIGRAM
     Dates: start: 20171129
  40. CHOLECALCIFEROL [Concomitant]
     Active Substance: CHOLECALCIFEROL
     Dosage: 1.5 G, QD
     Route: 048
     Dates: start: 20171122
  41. FENTANYL [Concomitant]
     Active Substance: FENTANYL
     Indication: Pain
  42. COCODAMOL [Concomitant]
     Active Substance: ACETAMINOPHEN\CODEINE PHOSPHATE
     Dosage: 8 MG
     Route: 048
     Dates: start: 20181107
  43. VALPROATE SODIUM [Concomitant]
     Active Substance: VALPROATE SODIUM
     Indication: Headache
     Dosage: 200 MILLIGRAM, BID
     Route: 048
     Dates: start: 20191023
  44. VALPROATE SODIUM [Concomitant]
     Active Substance: VALPROATE SODIUM
     Dosage: UNK
  45. MORPHINE SULFATE [Concomitant]
     Active Substance: MORPHINE SULFATE
     Indication: Pain
     Dosage: 25 MILLIGRAM, BID (OCCLUSIVE DRESSING TECHQNIQUE)
     Dates: start: 20191008
  46. TAMOXIFEN [Concomitant]
     Active Substance: TAMOXIFEN
     Indication: Breast cancer
     Dosage: 20 MILLIGRAM, QD
     Route: 048
     Dates: start: 20160509, end: 20160921
  47. METOCLOPRAMIDE [Concomitant]
     Active Substance: METOCLOPRAMIDE
     Indication: Vomiting
     Dosage: 10 MILLIGRAM
     Route: 042
     Dates: start: 20150818, end: 20150818
  48. METOCLOPRAMIDE [Concomitant]
     Active Substance: METOCLOPRAMIDE
     Dosage: 10 MILLIGRAM
     Route: 042
     Dates: start: 20190429
  49. CEFOTAXIME [Concomitant]
     Active Substance: CEFOTAXIME SODIUM
     Indication: Pyrexia
     Dosage: 1.2 MG, TID
     Route: 042
     Dates: start: 20191023, end: 20191027
  50. NAPROXEN [Concomitant]
     Active Substance: NAPROXEN
     Dosage: 250 MILLIGRAM
     Route: 048
     Dates: start: 20190911
  51. AMITRIPTYLINE [Concomitant]
     Active Substance: AMITRIPTYLINE
     Dosage: 10 MG
     Route: 048
     Dates: start: 20180111, end: 20180322
  52. ADCAL [CALCIUM CARBONATE; COLECALCIFEROL] [Concomitant]
     Dosage: UNK, QD
     Route: 048
     Dates: start: 20160202
  53. CYCLIZINE [Concomitant]
     Active Substance: CYCLIZINE
     Dosage: 50 MG
     Route: 048
     Dates: start: 20180208, end: 20191009
  54. ZOLEDRONIC ACID [Concomitant]
     Active Substance: ZOLEDRONIC ACID
     Dosage: 4 MILLIGRAM
     Route: 042
     Dates: start: 20150708, end: 20150708
  55. ZOLEDRONIC ACID [Concomitant]
     Active Substance: ZOLEDRONIC ACID
     Dosage: 3 MILLIGRAM
     Route: 042
     Dates: start: 20150929, end: 20150929
  56. ACETAMINOPHEN [Concomitant]
     Active Substance: ACETAMINOPHEN
     Dosage: 1 MILLIGRAM
     Route: 048
     Dates: start: 20160921, end: 20180322
  57. ACETAMINOPHEN [Concomitant]
     Active Substance: ACETAMINOPHEN
     Dosage: 1 MILLIGRAM
     Route: 048
     Dates: start: 20190911
  58. DEXAMETHASONE [Concomitant]
     Active Substance: DEXAMETHASONE
     Indication: Vomiting
     Dosage: 8 MILLIGRAM
     Route: 048
     Dates: start: 20150819, end: 20150821
  59. DEXAMETHASONE [Concomitant]
     Active Substance: DEXAMETHASONE
     Dosage: 4 MILLIGRAM
     Route: 048
     Dates: start: 20191031
  60. DEXAMETHASONE [Concomitant]
     Active Substance: DEXAMETHASONE
     Dosage: 8 MILLIGRAM
     Route: 048
     Dates: start: 20190429, end: 20190429
  61. DEXAMETHASONE [Concomitant]
     Active Substance: DEXAMETHASONE
     Dosage: 8 MILLIGRAM
     Route: 048
     Dates: start: 20190212, end: 20190219
  62. DEXAMETHASONE [Concomitant]
     Active Substance: DEXAMETHASONE
     Dosage: 8 MILLIGRAM
     Route: 048
     Dates: start: 20190306, end: 20190309
  63. DEXAMETHASONE [Concomitant]
     Active Substance: DEXAMETHASONE
     Dosage: 8 MILLIGRAM
     Route: 048
     Dates: start: 20190220, end: 20190227
  64. DEXAMETHASONE [Concomitant]
     Active Substance: DEXAMETHASONE
     Dosage: 8 MILLIGRAM
     Route: 048
     Dates: start: 20150909, end: 20150911
  65. DEXAMETHASONE [Concomitant]
     Active Substance: DEXAMETHASONE
     Dosage: 8 MILLIGRAM
     Route: 048
     Dates: start: 20190314, end: 20190317
  66. DEXAMETHASONE [Concomitant]
     Active Substance: DEXAMETHASONE
     Dosage: 6 MILLIGRAM
     Route: 048
     Dates: start: 20191023, end: 20191031
  67. DEXAMETHASONE [Concomitant]
     Active Substance: DEXAMETHASONE
     Dosage: 8 MILLIGRAM
     Route: 048
     Dates: start: 20190310, end: 20190313
  68. DEXAMETHASONE [Concomitant]
     Active Substance: DEXAMETHASONE
     Dosage: 8 MILLIGRAM
     Route: 048
     Dates: start: 20190911, end: 20190919
  69. DEXAMETHASONE [Concomitant]
     Active Substance: DEXAMETHASONE
     Dosage: 10 MILLIGRAM
     Route: 048
     Dates: start: 20190920, end: 20191023
  70. GOSERELIN [Concomitant]
     Active Substance: GOSERELIN
     Dosage: 3.6 MG
     Route: 058
     Dates: start: 20171101
  71. CHOLECALCIFEROL [Concomitant]
     Active Substance: CHOLECALCIFEROL
     Indication: Vitamin D decreased
     Dosage: 800 INTERNATIONAL UNIT
     Route: 048
     Dates: start: 20160323
  72. CHOLECALCIFEROL [Concomitant]
     Active Substance: CHOLECALCIFEROL
     Dosage: 800 INTERNATIONAL UNIT
     Route: 048
     Dates: start: 20150722, end: 20150924
  73. SENNA LEAF [Concomitant]
     Active Substance: SENNA LEAF
     Dosage: 7.5 MILLIGRAM
     Route: 048
     Dates: start: 20171122
  74. DENOSUMAB [Concomitant]
     Active Substance: DENOSUMAB
     Dosage: 120 MG
     Route: 058
     Dates: start: 20160405

REACTIONS (2)
  - Sepsis [Recovered/Resolved]
  - Off label use [Unknown]

NARRATIVE: CASE EVENT DATE: 20191216
